FAERS Safety Report 7416833-3 (Version None)
Quarter: 2011Q1

REPORT INFORMATION
  Report Type: 
  Country: None (occurrence: None)
  Receive Date: 20110302
  Receipt Date: 20101129
  Transmission Date: 20110831
  Serious: No
  Sender: FDA-Public Use
  Company Number: 022453

PATIENT
  Sex: Female
  Weight: 71.7 kg

DRUGS (1)
  1. CIMZIA [Suspect]
     Indication: CROHN'S DISEASE
     Dosage: 400 MG 1X/2 WEEKS, 0, 2, + 4, THEN  MONTHLY SUBCUTANEOUS
     Route: 058
     Dates: start: 20101027

REACTIONS (5)
  - DIVERTICULITIS [None]
  - FAECES HARD [None]
  - FATIGUE [None]
  - BODY TEMPERATURE FLUCTUATION [None]
  - GROIN PAIN [None]
